FAERS Safety Report 8473699-0 (Version None)
Quarter: 2012Q2

REPORT INFORMATION
  Report Type: 
  Country: None (occurrence: None)
  Receive Date: 20120628
  Receipt Date: 20111017
  Transmission Date: 20120825
  Serious: Yes (Other)
  Sender: FDA-Public Use
  Company Number: US-MYLANLABS-2011S1019122

PATIENT
  Age: 37 Year
  Sex: Female
  Weight: 68.04 kg

DRUGS (20)
  1. LORAZEPAM [Concomitant]
     Dates: start: 20110803, end: 20110914
  2. ACYCLOVIR [Concomitant]
     Dates: start: 20110824, end: 20110825
  3. CALCIUM [Concomitant]
     Dates: start: 20110803, end: 20110815
  4. POLYETHYLENE GLYCOL [Concomitant]
     Dates: start: 20110803, end: 20110914
  5. CLOZAPINE [Suspect]
     Indication: SCHIZOAFFECTIVE DISORDER
     Dates: start: 20110803, end: 20110908
  6. HALOPERIDOL [Concomitant]
     Dates: start: 20110803, end: 20110914
  7. IPRATROPIUM BROMIDE [Concomitant]
     Dates: start: 20110803, end: 20110914
  8. SIMVASTATIN [Concomitant]
     Dates: start: 20110803, end: 20110914
  9. HYDROXYZINE HCL [Concomitant]
     Dates: start: 20110803, end: 20110914
  10. HYDROPHILIC [Concomitant]
     Dates: start: 20110808, end: 20110910
  11. LIDOCAINE [Concomitant]
     Dates: start: 20110825, end: 20110829
  12. ASPIRIN [Concomitant]
     Dates: start: 20110803, end: 20110914
  13. PAROXETINE [Concomitant]
     Dates: start: 20110803, end: 20110914
  14. CLOZAPINE [Suspect]
     Indication: AFFECTIVE DISORDER
     Dates: start: 20110803, end: 20110908
  15. CLONAZEPAM [Concomitant]
     Dates: start: 20110803, end: 20110914
  16. RANITINE [Concomitant]
     Dates: start: 20110803, end: 20110914
  17. DIVALPROEX SODIUM [Concomitant]
     Dates: start: 20110803, end: 20110914
  18. ALBUTEROL [Concomitant]
     Dates: start: 20110803, end: 20110914
  19. ACETAMINOPHEN [Concomitant]
     Dates: start: 20110803, end: 20110914
  20. WARFARIN SODIUM [Concomitant]
     Dates: start: 20110803, end: 20110918

REACTIONS (1)
  - GRANULOCYTOPENIA [None]
